FAERS Safety Report 23427238 (Version 1)
Quarter: 2024Q1

REPORT INFORMATION
  Report Type: Spontaneous
  Country: US (occurrence: US)
  Receive Date: 20240122
  Receipt Date: 20240122
  Transmission Date: 20240410
  Serious: No
  Sender: FDA-Public Use
  Company Number: US-PERRIGO-23US010965

PATIENT
  Age: 38 Year
  Sex: Female
  Weight: 47.619 kg

DRUGS (3)
  1. IBUPROFEN [Suspect]
     Active Substance: IBUPROFEN
     Indication: Off label use
     Dosage: 100 MG, SINGLE
     Route: 048
     Dates: start: 20230912, end: 20230912
  2. VITAMIN A [Concomitant]
     Active Substance: VITAMIN A
     Indication: Supplementation therapy
     Dosage: UNK
     Route: 065
     Dates: start: 2017
  3. HUMIRA [Concomitant]
     Active Substance: ADALIMUMAB
     Indication: Autoimmune disorder
     Dosage: UNK
     Route: 065

REACTIONS (4)
  - Throat irritation [Recovered/Resolved]
  - Oropharyngeal pain [Recovered/Resolved]
  - Cough [Recovered/Resolved]
  - Product administered to patient of inappropriate age [Recovered/Resolved]

NARRATIVE: CASE EVENT DATE: 20230912
